FAERS Safety Report 9145682 (Version 1)
Quarter: 2013Q1

REPORT INFORMATION
  Report Type: Spontaneous
  Country: US (occurrence: None)
  Receive Date: 20130227
  Receipt Date: 20130227
  Transmission Date: 20140127
  Serious: Yes (Other)
  Sender: FDA-Public Use
  Company Number: None

PATIENT
  Age: 10 Year
  Sex: Female
  Weight: 54.89 kg

DRUGS (2)
  1. MONTELUKAST [Suspect]
     Indication: RHINITIS ALLERGIC
     Dates: start: 2009
  2. CLARITIN [Concomitant]

REACTIONS (3)
  - Nausea [None]
  - Vomiting [None]
  - Product substitution issue [None]
